FAERS Safety Report 16188434 (Version 1)
Quarter: 2019Q2

REPORT INFORMATION
  Report Type: Report from Study
  Country: None (occurrence: US)
  Receive Date: 20190412
  Receipt Date: 20190412
  Transmission Date: 20190711
  Serious: Yes (Hospitalization)
  Sender: FDA-Public Use
  Company Number: US-ABBVIE-19K-163-2741414-00

PATIENT
  Sex: Male

DRUGS (2)
  1. HUMIRA [Suspect]
     Active Substance: ADALIMUMAB
     Indication: CROHN^S DISEASE
     Route: 058
     Dates: end: 201810
  2. HUMIRA [Suspect]
     Active Substance: ADALIMUMAB
     Route: 058
     Dates: start: 20190309

REACTIONS (7)
  - Nausea [Unknown]
  - Constipation [Unknown]
  - Asthenia [Unknown]
  - Rectal haemorrhage [Unknown]
  - Anxiety [Unknown]
  - Crohn^s disease [Unknown]
  - Depression [Not Recovered/Not Resolved]
